FAERS Safety Report 10416350 (Version 3)
Quarter: 2015Q1

REPORT INFORMATION
  Report Type: Spontaneous
  Country: US (occurrence: None)
  Receive Date: 20140826
  Receipt Date: 20150319
  Transmission Date: 20150720
  Serious: Yes (Hospitalization, Other)
  Sender: FDA-Public Use
  Company Number: 2493771

PATIENT
  Age: 67 Year
  Sex: Female
  Weight: 89.5 kg

DRUGS (12)
  1. LEVOTHYROXINE [Concomitant]
     Active Substance: LEVOTHYROXINE
  2. CYTARABINE INJECTION [Suspect]
     Active Substance: CYTARABINE
     Indication: ACUTE MYELOID LEUKAEMIA
     Dosage: 200 MG MILLIGRAM(S), UNKNOWN, INTRAVENOUS DRIP ?
     Route: 041
     Dates: start: 20140317, end: 20140323
  3. CITALOPRAM [Concomitant]
     Active Substance: CITALOPRAM HYDROBROMIDE
  4. ACICLOVIR [Concomitant]
     Active Substance: ACYCLOVIR
  5. DAUNORUBICIN [Suspect]
     Active Substance: DAUNORUBICIN
     Indication: ACUTE MYELOID LEUKAEMIA
     Dosage: 120 MG MILLIGRAM(S), 1 DAY, INTRAVENOUS BOLUS?
     Route: 040
     Dates: start: 20140317, end: 20140319
  6. LEVOFLOXACIN. [Concomitant]
     Active Substance: LEVOFLOXACIN
  7. ERGOCALCIFEROL. [Concomitant]
     Active Substance: ERGOCALCIFEROL
  8. CLINDAMYCIN [Concomitant]
     Active Substance: CLINDAMYCIN\CLINDAMYCIN PHOSPHATE
  9. INVESTIGATIONAL DRUG [Suspect]
     Active Substance: INVESTIGATIONAL PRODUCT
     Indication: ACUTE MYELOID LEUKAEMIA
     Dosage: 100 MG MILLIGRAM(S), 1 DAY, ORAL
     Route: 048
     Dates: start: 20140314, end: 20140415
  10. DIPHENHYDRAMINE HCL [Concomitant]
     Active Substance: DIPHENHYDRAMINE HYDROCHLORIDE
  11. PARACETAMOL [Concomitant]
     Active Substance: ACETAMINOPHEN
  12. BUTALBITAL W/CAFFEINE/PARACETAMOL [Concomitant]
     Active Substance: CAFFEINE

REACTIONS (45)
  - Oxygen saturation decreased [None]
  - Haemorrhage [None]
  - Uterine leiomyoma [None]
  - Tendon disorder [None]
  - Atelectasis [None]
  - Synovial rupture [None]
  - Vaginal haemorrhage [None]
  - Hypotension [None]
  - Thrombocytopenia [None]
  - Mitral valve incompetence [None]
  - Intervertebral disc protrusion [None]
  - Pathological fracture [None]
  - Supraventricular extrasystoles [None]
  - Systolic hypertension [None]
  - Coronary artery disease [None]
  - Back pain [None]
  - Mitral valve sclerosis [None]
  - Pulmonary hypertension [None]
  - Soft tissue disorder [None]
  - Spinal osteoarthritis [None]
  - Dizziness [None]
  - Pulmonary valve incompetence [None]
  - Nerve compression [None]
  - Osteoarthritis [None]
  - Arthritis [None]
  - Osteomyelitis [None]
  - Pyrexia [None]
  - Joint effusion [None]
  - Fluid intake reduced [None]
  - Arteriospasm coronary [None]
  - Acute myocardial infarction [None]
  - Muscular weakness [None]
  - Musculoskeletal pain [None]
  - Folliculitis [None]
  - Confusional state [None]
  - Acute kidney injury [None]
  - Tricuspid valve incompetence [None]
  - Arthralgia [None]
  - Fractured sacrum [None]
  - Bone marrow failure [None]
  - Hypovolaemia [None]
  - Aortic dilatation [None]
  - Renal tubular necrosis [None]
  - Left ventricular dysfunction [None]
  - Left atrial dilatation [None]

NARRATIVE: CASE EVENT DATE: 20140410
